FAERS Safety Report 4565346-5 (Version None)
Quarter: 2005Q1

REPORT INFORMATION
  Report Type: 
  Country: None (occurrence: None)
  Receive Date: 20050126
  Receipt Date: 20050106
  Transmission Date: 20050727
  Serious: Yes (Other)
  Sender: FDA-Public Use
  Company Number: GBS050116345

PATIENT
  Age: 23 Year
  Sex: Female

DRUGS (1)
  1. PROZAC [Suspect]
     Route: 048

REACTIONS (4)
  - ALCOHOL USE [None]
  - IMPRISONMENT [None]
  - LEGAL PROBLEM [None]
  - PHYSICAL ASSAULT [None]
